FAERS Safety Report 7300910-1 (Version None)
Quarter: 2011Q1

REPORT INFORMATION
  Report Type: 
  Country: None (occurrence: None)
  Receive Date: 20110104
  Receipt Date: 20100505
  Transmission Date: 20110831
  Serious: Yes (Disabling, Other)
  Sender: FDA-Public Use
  Company Number: 233886USA

PATIENT
  Sex: Female

DRUGS (5)
  1. MEDROXYPROGESTERONE [Suspect]
     Indication: MENOPAUSAL SYMPTOMS
  2. MEDROXYPROGESTERONE [Suspect]
     Indication: MENOPAUSAL SYMPTOMS
  3. ESTROGENS CONJUGATED [Suspect]
     Indication: MENOPAUSAL SYMPTOMS
  4. ESTROPIPATE [Suspect]
     Indication: MENOPAUSAL SYMPTOMS
  5. ESTROPIPATE [Suspect]
     Indication: MENOPAUSAL SYMPTOMS

REACTIONS (2)
  - BREAST CANCER IN SITU [None]
  - BREAST CANCER [None]
